FAERS Safety Report 12736515 (Version 1)
Quarter: 2016Q3

REPORT INFORMATION
  Report Type: Spontaneous
  Country: HN (occurrence: HN)
  Receive Date: 20160912
  Receipt Date: 20160912
  Transmission Date: 20161109
  Serious: Yes (Hospitalization)
  Sender: FDA-Public Use
  Company Number: HN-NOVOPROD-508751

PATIENT
  Sex: Female

DRUGS (4)
  1. NOVORAPID [Suspect]
     Active Substance: INSULIN ASPART
     Dosage: 19 IU, QD
     Route: 063
     Dates: start: 20160714
  2. LEVEMIR [Suspect]
     Active Substance: INSULIN DETEMIR
     Dosage: 32 IU, QD
     Route: 063
     Dates: start: 20160714
  3. LEVEMIR [Suspect]
     Active Substance: INSULIN DETEMIR
     Indication: TYPE 1 DIABETES MELLITUS
     Dosage: 32 IU, QD
     Route: 064
     Dates: start: 20160510, end: 20160714
  4. NOVORAPID [Suspect]
     Active Substance: INSULIN ASPART
     Indication: TYPE 1 DIABETES MELLITUS
     Dosage: 19 IU, QD
     Route: 064
     Dates: start: 20160510, end: 20160714

REACTIONS (2)
  - Foetal exposure during pregnancy [Recovered/Resolved]
  - Joint dislocation [Recovered/Resolved]

NARRATIVE: CASE EVENT DATE: 20160510
